FAERS Safety Report 19099475 (Version 1)
Quarter: 2021Q2

REPORT INFORMATION
  Report Type: Spontaneous
  Country: US (occurrence: US)
  Receive Date: 20210407
  Receipt Date: 20210407
  Transmission Date: 20210717
  Serious: No
  Sender: FDA-Public Use
  Company Number: US-GLAXOSMITHKLINE-US2021AMR074599

PATIENT
  Age: 67 Year
  Sex: Male

DRUGS (2)
  1. METOPROLOL. [Interacting]
     Active Substance: METOPROLOL
     Indication: PRODUCT USED FOR UNKNOWN INDICATION
     Dosage: UNK
  2. ALBUTEROL SULFATE. [Suspect]
     Active Substance: ALBUTEROL SULFATE
     Indication: COVID-19
     Dosage: UNK, 90 MCG, 18G/200 METERED
     Route: 055
     Dates: start: 20210404

REACTIONS (9)
  - Dysphonia [Unknown]
  - Accidental exposure to product [Unknown]
  - Throat irritation [Unknown]
  - Off label use [Unknown]
  - Cough [Unknown]
  - Condition aggravated [Unknown]
  - Chest discomfort [Unknown]
  - Drug interaction [Unknown]
  - Erythema [Unknown]

NARRATIVE: CASE EVENT DATE: 20210405
